FAERS Safety Report 9210589 (Version 1)
Quarter: 2013Q2

REPORT INFORMATION
  Report Type: Report from Study
  Country: CA (occurrence: CA)
  Receive Date: 20130404
  Receipt Date: 20130404
  Transmission Date: 20140414
  Serious: Yes (Other)
  Sender: FDA-Public Use
  Company Number: CA-JNJFOC-20130317727

PATIENT
  Age: 54 Year
  Sex: Female
  Weight: 68.04 kg

DRUGS (2)
  1. STELARA [Suspect]
     Indication: PSORIASIS
     Route: 058
  2. METHOTREXATE [Concomitant]

REACTIONS (1)
  - Carpal tunnel syndrome [Unknown]
